FAERS Safety Report 23549341 (Version 1)
Quarter: 2024Q1

REPORT INFORMATION
  Report Type: Spontaneous
  Country: US (occurrence: None)
  Receive Date: 20240220
  Receipt Date: 20240220
  Transmission Date: 20240410
  Serious: Yes (Other)
  Sender: FDA-Public Use
  Company Number: None

PATIENT
  Age: 58 Year
  Sex: Female
  Weight: 56.25 kg

DRUGS (8)
  1. AJOVY [Suspect]
     Active Substance: FREMANEZUMAB-VFRM
     Indication: Migraine
     Dosage: OTHER QUANTITY : 1 INJECTION(S);?OTHER FREQUENCY : EVERY 28 DAYS;?
     Route: 058
  2. SERTRALINE [Concomitant]
     Active Substance: SERTRALINE HYDROCHLORIDE
  3. XANAX [Concomitant]
     Active Substance: ALPRAZOLAM
  4. MAXALT [Concomitant]
     Active Substance: RIZATRIPTAN BENZOATE
  5. VITAMINS [Concomitant]
     Active Substance: VITAMINS
  6. cal-mag [Concomitant]
  7. FISH OIL [Concomitant]
     Active Substance: FISH OIL
  8. UNSPECIFIED INGREDIENT [Concomitant]
     Active Substance: UNSPECIFIED INGREDIENT

REACTIONS (10)
  - Fatigue [None]
  - Nasopharyngitis [None]
  - Influenza [None]
  - Respiratory symptom [None]
  - Dizziness [None]
  - Feeling jittery [None]
  - Anxiety [None]
  - Dry mouth [None]
  - Asthenopia [None]
  - Fatigue [None]

NARRATIVE: CASE EVENT DATE: 20240111
